FAERS Safety Report 16301977 (Version 2)
Quarter: 2019Q2

REPORT INFORMATION
  Report Type: Spontaneous
  Country: BE (occurrence: BE)
  Receive Date: 20190512
  Receipt Date: 20190611
  Transmission Date: 20190711
  Serious: Yes (Other)
  Sender: FDA-Public Use
  Company Number: PHHY2019BE103299

PATIENT
  Sex: Male

DRUGS (6)
  1. DOPAMINE [Concomitant]
     Active Substance: DOPAMINE\DOPAMINE HYDROCHLORIDE
     Indication: ACROMEGALY
     Route: 065
  2. PASIREOTIDE LAR [Suspect]
     Active Substance: PASIREOTIDE
     Indication: ACROMEGALY
     Dosage: 30 MG, QMO
     Route: 065
  3. PASIREOTIDE LAR [Suspect]
     Active Substance: PASIREOTIDE
     Dosage: 60 MG, QMO
     Route: 065
  4. OCTREOTIDE. [Suspect]
     Active Substance: OCTREOTIDE
     Indication: ACROMEGALY
     Dosage: UNK UNK, TID
     Route: 058
  5. PASIREOTIDE LAR [Suspect]
     Active Substance: PASIREOTIDE
     Dosage: 40 MG, QMO
     Route: 065
  6. LANREOTIDE ACETATE [Suspect]
     Active Substance: LANREOTIDE ACETATE
     Indication: ACROMEGALY
     Route: 065

REACTIONS (3)
  - Disease progression [Recovered/Resolved]
  - Type 2 diabetes mellitus [Unknown]
  - Diabetes mellitus [Unknown]
